FAERS Safety Report 6426427-4 (Version None)
Quarter: 2009Q4

REPORT INFORMATION
  Report Type: 
  Country: None (occurrence: None)
  Receive Date: 20091104
  Receipt Date: 20091021
  Transmission Date: 20100525
  Serious: Yes (Other)
  Sender: FDA-Public Use
  Company Number: PHHY2009FR46744

PATIENT
  Age: 82 Year
  Sex: Male

DRUGS (5)
  1. DESFERAL [Suspect]
     Indication: REFRACTORY ANAEMIA
     Dosage: UNK
     Dates: start: 20071001
  2. MOTILIUM [Concomitant]
  3. CIPRALAN [Concomitant]
  4. SPECIAFOLDINE [Concomitant]
  5. ZOPICLONE [Concomitant]

REACTIONS (2)
  - SUBCUTANEOUS HAEMATOMA [None]
  - THROMBOCYTOPENIA [None]
